FAERS Safety Report 8027657-0 (Version None)
Quarter: 2012Q1

REPORT INFORMATION
  Report Type: 
  Country: None (occurrence: None)
  Receive Date: 20120106
  Receipt Date: 20100809
  Transmission Date: 20120608
  Serious: Yes (Hospitalization, Other)
  Sender: FDA-Public Use
  Company Number: US-BAYER-201023246NA

PATIENT
  Age: 44 Year
  Sex: Female
  Weight: 79.545 kg

DRUGS (11)
  1. SEROQUEL [Concomitant]
  2. YAZ [Suspect]
  3. ASPIRIN [Concomitant]
  4. IRON SULFATETHIAMIN COMPOUND TAB [Concomitant]
  5. HYDROCELE [Concomitant]
  6. IMITREX [Concomitant]
  7. YAZ [Suspect]
     Indication: PREMENSTRUAL SYNDROME
     Route: 048
     Dates: start: 20070701, end: 20080701
  8. CALCIUM WITH VITAMIN D [Concomitant]
  9. TRIAMCINOLONE [Concomitant]
  10. EFFEXOR XR [Concomitant]
     Dosage: 150 MG (DAILY DOSE), QD,
  11. MULTIPLE VITAMINS [Concomitant]

REACTIONS (8)
  - DEEP VEIN THROMBOSIS [None]
  - PULMONARY EMBOLISM [None]
  - THROMBOSIS [None]
  - OEDEMA PERIPHERAL [None]
  - BIPOLAR DISORDER [None]
  - HEADACHE [None]
  - PAIN IN EXTREMITY [None]
  - DEPRESSION [None]
